FAERS Safety Report 23794023 (Version 1)
Quarter: 2024Q2

REPORT INFORMATION
  Report Type: Spontaneous
  Country: US (occurrence: None)
  Receive Date: 20240426
  Receipt Date: 20240426
  Transmission Date: 20240716
  Serious: Yes (Life-Threatening, Hospitalization)
  Sender: FDA-Public Use
  Company Number: None

PATIENT
  Age: 82 Year
  Sex: Male

DRUGS (1)
  1. HYDRALAZINE HYDROCHLORIDE [Suspect]
     Active Substance: HYDRALAZINE HYDROCHLORIDE
     Indication: Hypertension
     Dates: start: 20230425, end: 20230502

REACTIONS (4)
  - Respiratory depression [None]
  - Respiratory failure [None]
  - Pulmonary alveolar haemorrhage [None]
  - Pulmonary toxicity [None]

NARRATIVE: CASE EVENT DATE: 20230426
